FAERS Safety Report 17127016 (Version 1)
Quarter: 2019Q4

REPORT INFORMATION
  Report Type: Spontaneous
  Country: US (occurrence: US)
  Receive Date: 20191209
  Receipt Date: 20191209
  Transmission Date: 20200122
  Serious: No
  Sender: FDA-Public Use
  Company Number: US-CELGENEUS-USA-20191200247

PATIENT
  Sex: Female

DRUGS (2)
  1. APREMILAST [Suspect]
     Active Substance: APREMILAST
     Dosage: DOSE REDUCED
     Route: 048
     Dates: start: 2019, end: 2019
  2. APREMILAST [Suspect]
     Active Substance: APREMILAST
     Indication: PRODUCT USED FOR UNKNOWN INDICATION
     Route: 048

REACTIONS (3)
  - Nausea [Unknown]
  - Weight decreased [Unknown]
  - Vomiting [Unknown]
